FAERS Safety Report 23642701 (Version 2)
Quarter: 2024Q1

REPORT INFORMATION
  Report Type: Spontaneous
  Country: GB (occurrence: GB)
  Receive Date: 20240318
  Receipt Date: 20240325
  Transmission Date: 20240410
  Serious: No
  Sender: FDA-Public Use
  Company Number: GB-MYLANLABS-2024M1023504

PATIENT
  Sex: Female

DRUGS (1)
  1. CLOZAPINE [Suspect]
     Active Substance: CLOZAPINE
     Indication: Dementia with Lewy bodies
     Dosage: 300 MILLIGRAM, QD (100 MG MORNING AND 200 MG NIGHT)
     Route: 065
     Dates: start: 2023

REACTIONS (1)
  - Off label use [Unknown]
